FAERS Safety Report 6831747-5 (Version None)
Quarter: 2010Q3

REPORT INFORMATION
  Report Type: 
  Country: None (occurrence: None)
  Receive Date: 20100712
  Receipt Date: 20100629
  Transmission Date: 20110219
  Serious: Yes (Hospitalization, Other)
  Sender: FDA-Public Use
  Company Number: US-ELI_LILLY_AND_COMPANY-US201006002512

PATIENT
  Sex: Female

DRUGS (16)
  1. FORTEO [Suspect]
     Indication: OSTEOPOROSIS
     Dosage: 20 UG, DAILY (1/D)
     Dates: end: 20100501
  2. NEXIUM [Concomitant]
     Dosage: 40 MG, UNK
  3. ADVAIR DISKUS 100/50 [Concomitant]
  4. ZETIA [Concomitant]
     Dosage: 10 MG, UNK
  5. CLARINEX [Concomitant]
  6. GLUCOSAMINE CHONDROITIN [Concomitant]
  7. MSM [Concomitant]
  8. COENZYME [Concomitant]
  9. CALCIUM [Concomitant]
  10. MAGNESIUM [Concomitant]
  11. VITAMIN C [Concomitant]
  12. VITAMIN B COMPLEX CAP [Concomitant]
  13. POTASSIUM [Concomitant]
  14. VITAMINS [Concomitant]
  15. CELNIUM [Concomitant]
  16. ECHINACEA /01323501/ [Concomitant]

REACTIONS (2)
  - FALL [None]
  - HIP FRACTURE [None]
